FAERS Safety Report 11184863 (Version 1)
Quarter: 2015Q2

REPORT INFORMATION
  Report Type: Report from Study
  Country: US (occurrence: US)
  Receive Date: 20150612
  Receipt Date: 20150612
  Transmission Date: 20150821
  Serious: Yes (Hospitalization, Other)
  Sender: FDA-Public Use
  Company Number: US-ABBVIE-15P-163-1403436-00

PATIENT
  Age: 40 Year
  Sex: Female
  Weight: 57.66 kg

DRUGS (3)
  1. HUMIRA [Suspect]
     Active Substance: ADALIMUMAB
     Indication: CROHN^S DISEASE
     Route: 058
     Dates: start: 2011, end: 201406
  2. HUMIRA [Suspect]
     Active Substance: ADALIMUMAB
     Route: 058
     Dates: start: 201406
  3. ESSURE BIRTH CONTROL [Suspect]
     Active Substance: DEVICE
     Indication: CONTRACEPTION
     Route: 065

REACTIONS (13)
  - Diarrhoea [Recovering/Resolving]
  - Exposure during pregnancy [Unknown]
  - Twin pregnancy [None]
  - Crohn^s disease [Unknown]
  - Pregnancy with contraceptive device [Unknown]
  - Haematochezia [Recovering/Resolving]
  - Female sterilisation [Unknown]
  - Defaecation urgency [Recovering/Resolving]
  - Fatigue [Not Recovered/Not Resolved]
  - Premature labour [Recovered/Resolved]
  - Dyspnoea [Recovered/Resolved]
  - Haemoglobin decreased [Recovered/Resolved]
  - Maternal exposure during pregnancy [None]

NARRATIVE: CASE EVENT DATE: 201402
